FAERS Safety Report 16278124 (Version 6)
Quarter: 2019Q4

REPORT INFORMATION
  Report Type: Spontaneous
  Country: GR (occurrence: GR)
  Receive Date: 20190506
  Receipt Date: 20191118
  Transmission Date: 20200122
  Serious: Yes (Other)
  Sender: FDA-Public Use
  Company Number: GR-MYLANLABS-2019M1042478

PATIENT
  Age: 58 Year
  Sex: Male

DRUGS (14)
  1. IFOSFAMIDE. [Suspect]
     Active Substance: IFOSFAMIDE
     Indication: METASTASES TO CENTRAL NERVOUS SYSTEM
     Dosage: UNK
     Route: 065
  2. RITUXIMAB. [Suspect]
     Active Substance: RITUXIMAB
     Indication: MANTLE CELL LYMPHOMA STAGE IV
     Dosage: 6 CYCLES
     Route: 065
  3. PREDNISONE. [Suspect]
     Active Substance: PREDNISONE
     Indication: MANTLE CELL LYMPHOMA STAGE IV
     Dosage: DOSAGE FORM: UNSPECIFIED
     Route: 065
  4. IBRUTINIB [Suspect]
     Active Substance: IBRUTINIB
     Indication: MANTLE CELL LYMPHOMA
     Dosage: DOSAGE FORM: UNSPECIFIED
     Route: 065
  5. CYTARABIN [Suspect]
     Active Substance: CYTARABINE
     Indication: MANTLE CELL LYMPHOMA STAGE IV
     Dosage: DOSAGE FORM: UNSPECIFIED
     Route: 065
  6. DOXORUBICIN [Suspect]
     Active Substance: DOXORUBICIN
     Indication: MANTLE CELL LYMPHOMA STAGE IV
     Dosage: UNK
     Route: 065
  7. CYCLOPHOSPHAMIDE. [Suspect]
     Active Substance: CYCLOPHOSPHAMIDE
     Indication: MANTLE CELL LYMPHOMA STAGE IV
     Dosage: UNK UNK, QCY
     Route: 065
  8. CISPLATIN. [Suspect]
     Active Substance: CISPLATIN
     Indication: MANTLE CELL LYMPHOMA STAGE IV
     Dosage: UNK
     Route: 065
  9. VINCRISTINE                        /00078802/ [Suspect]
     Active Substance: VINCRISTINE
     Indication: MANTLE CELL LYMPHOMA STAGE IV
     Dosage: UNK UNK, QCY
     Route: 065
  10. DEXAMETHASONE. [Suspect]
     Active Substance: DEXAMETHASONE
     Dosage: UNK
     Route: 065
  11. ETOPOSIDE. [Suspect]
     Active Substance: ETOPOSIDE
     Indication: METASTASES TO CENTRAL NERVOUS SYSTEM
     Dosage: UNK
  12. DEXAMETHASONE. [Suspect]
     Active Substance: DEXAMETHASONE
     Indication: MANTLE CELL LYMPHOMA STAGE IV
     Dosage: UNK (3 CYCLES)
     Route: 065
  13. BENDAMUSTINE [Concomitant]
     Active Substance: BENDAMUSTINE
     Indication: MANTLE CELL LYMPHOMA STAGE IV
     Dosage: UNSPECIFIED
     Route: 065
  14. METHOTREXATE. [Suspect]
     Active Substance: METHOTREXATE
     Indication: MANTLE CELL LYMPHOMA STAGE IV
     Dosage: DOSAGE FORM: UNSPECIFIED
     Route: 065

REACTIONS (14)
  - Oedema [Unknown]
  - Mass [Unknown]
  - Lymphadenopathy [Unknown]
  - Pharyngeal cancer stage IV [Recovering/Resolving]
  - Disease progression [Unknown]
  - Therapeutic response decreased [Unknown]
  - Mantle cell lymphoma recurrent [Recovering/Resolving]
  - Exophthalmos [Unknown]
  - Metastases to meninges [Recovering/Resolving]
  - Drug ineffective [Unknown]
  - Metastases to central nervous system [Unknown]
  - Pain [Unknown]
  - Therapy partial responder [Unknown]
  - Product use in unapproved indication [Unknown]

NARRATIVE: CASE EVENT DATE: 201609
